FAERS Safety Report 18883697 (Version 1)
Quarter: 2021Q1

REPORT INFORMATION
  Report Type: Other
  Country: CN (occurrence: CN)
  Receive Date: 20210212
  Receipt Date: 20210212
  Transmission Date: 20210420
  Serious: Yes (Other)
  Sender: FDA-Public Use
  Company Number: CN-ROCHE-2763057

PATIENT
  Sex: Female

DRUGS (7)
  1. BEVACIZUMAB. [Suspect]
     Active Substance: BEVACIZUMAB
     Indication: OVARIAN CANCER
     Route: 041
  2. DEXAMETHASONE ACETATE [Concomitant]
     Active Substance: DEXAMETHASONE ACETATE
     Route: 048
  3. PACLITAXEL. [Suspect]
     Active Substance: PACLITAXEL
     Indication: OVARIAN CANCER
     Dosage: DAY 1
     Route: 041
  4. CISPLATIN. [Suspect]
     Active Substance: CISPLATIN
     Indication: OVARIAN CANCER
     Dosage: DAY 1
     Route: 041
  5. SHEN YI JIAO NANG [Suspect]
     Active Substance: GINSENOSIDE RG3
     Indication: OVARIAN CANCER
     Dosage: 1DF=1 CAPSULE
     Route: 048
  6. DEXAMETHASONE SODIUM [Concomitant]
     Active Substance: DEXAMETHASONE
     Route: 030
  7. DIPHENHYDRAMINE. [Concomitant]
     Active Substance: DIPHENHYDRAMINE
     Route: 048

REACTIONS (5)
  - Thrombocytopenia [Unknown]
  - Vomiting [Unknown]
  - Renal impairment [Unknown]
  - Leukopenia [Unknown]
  - Alopecia [Unknown]
